FAERS Safety Report 9639251 (Version 3)
Quarter: 2014Q1

REPORT INFORMATION
  Report Type: Report from Study
  Country: JP (occurrence: JP)
  Receive Date: 20131022
  Receipt Date: 20140107
  Transmission Date: 20141002
  Serious: Yes (Death, Life-Threatening, Other)
  Sender: FDA-Public Use
  Company Number: JP-ROCHE-1287435

PATIENT
  Age: 85 Year
  Sex: Female

DRUGS (13)
  1. METHOXY POLYETHYLENE GLYCOL-EPOETIN BETA [Suspect]
     Indication: NEPHROGENIC ANAEMIA
     Route: 058
     Dates: start: 20130424, end: 20130524
  2. PIPERACILLIN SODIUM/TAZOBACTAM SODIUM [Suspect]
     Indication: PNEUMONIA
     Route: 042
     Dates: start: 20130505, end: 20130506
  3. CILOSTAZOL [Concomitant]
     Route: 048
     Dates: end: 20130526
  4. SARPOGRELATE HYDROCHLORIDE [Concomitant]
     Route: 048
     Dates: end: 20130526
  5. MAGNESIUM OXIDE [Concomitant]
     Route: 048
     Dates: end: 20130526
  6. CLOTIAZEPAM [Concomitant]
     Route: 048
     Dates: end: 20130526
  7. CELECOXIB [Concomitant]
     Route: 048
     Dates: end: 20130526
  8. FUROSEMIDE [Concomitant]
     Route: 048
     Dates: end: 20130526
  9. SPIRONOLACTONE [Concomitant]
     Route: 048
     Dates: end: 20130526
  10. BENSERAZIDE/LEVODOPA [Concomitant]
     Route: 048
     Dates: end: 20130526
  11. ZOLPIDEM TARTRATE [Concomitant]
     Route: 048
     Dates: end: 20130526
  12. PRAMIPEXOLE HYDROCHLORIDE [Concomitant]
     Route: 048
     Dates: end: 20130526
  13. RAMELTEON [Concomitant]
     Route: 048
     Dates: end: 20130526

REACTIONS (7)
  - Myocardial infarction [Fatal]
  - Pneumonia [Recovering/Resolving]
  - Pseudomembranous colitis [Not Recovered/Not Resolved]
  - Thrombocytopenia [Not Recovered/Not Resolved]
  - Sepsis [Not Recovered/Not Resolved]
  - Disseminated intravascular coagulation [Not Recovered/Not Resolved]
  - Anaemia [Unknown]
